FAERS Safety Report 5957262-9 (Version None)
Quarter: 2008Q4

REPORT INFORMATION
  Report Type: 
  Country: None (occurrence: None)
  Receive Date: 20081118
  Receipt Date: 20081104
  Transmission Date: 20090506
  Serious: No
  Sender: FDA-Public Use
  Company Number: US-B.I. PHARMACEUTICALS,INC./RIDGEFIELD-2007-BP-21019BP

PATIENT
  Age: 62 Year
  Sex: Female

DRUGS (9)
  1. SPIRIVA [Suspect]
     Indication: CHRONIC OBSTRUCTIVE PULMONARY DISEASE
     Dosage: 18MCG
     Route: 055
     Dates: start: 20060801
  2. SPIRIVA [Suspect]
     Dosage: 18MCG
     Route: 055
     Dates: start: 20080801, end: 20081028
  3. ADVAIR DISKUS 100/50 [Suspect]
     Indication: CHRONIC OBSTRUCTIVE PULMONARY DISEASE
  4. RANITIDINE [Concomitant]
     Indication: HIATUS HERNIA
  5. DIOVAN [Concomitant]
     Indication: HYPERTENSION
  6. LORAZEPAM [Concomitant]
     Indication: ANXIETY
  7. LOVAZA [Concomitant]
     Indication: MEDICAL DIET
  8. FORTICAL [Concomitant]
     Indication: OSTEOPOROSIS
     Route: 045
  9. ALBUTEROL [Concomitant]
     Indication: CHRONIC OBSTRUCTIVE PULMONARY DISEASE
     Route: 055

REACTIONS (3)
  - DYSPNOEA [None]
  - POLLAKIURIA [None]
  - URINARY TRACT INFECTION [None]
